FAERS Safety Report 25157555 (Version 5)
Quarter: 2025Q3

REPORT INFORMATION
  Report Type: Spontaneous
  Country: GB (occurrence: GB)
  Receive Date: 20250403
  Receipt Date: 20250708
  Transmission Date: 20251020
  Serious: Yes (Death, Other)
  Sender: BIOGEN
  Company Number: GB-SANDOZ-SDZ2025GB007856

PATIENT
  Sex: Female

DRUGS (3)
  1. TYRUKO [Suspect]
     Active Substance: NATALIZUMAB-SZTN
     Indication: Product used for unknown indication
     Route: 050
     Dates: start: 202404
  2. TYSABRI [Suspect]
     Active Substance: NATALIZUMAB
     Indication: Product used for unknown indication
     Route: 050
  3. TYSABRI [Suspect]
     Active Substance: NATALIZUMAB
     Route: 050

REACTIONS (3)
  - Condition aggravated [Fatal]
  - Progressive multifocal leukoencephalopathy [Unknown]
  - Product substitution issue [Unknown]
